FAERS Safety Report 9056863 (Version 2)
Quarter: 2013Q1

REPORT INFORMATION
  Report Type: Report from Study
  Country: JP (occurrence: JP)
  Receive Date: 20130201
  Receipt Date: 20130311
  Transmission Date: 20140127
  Serious: No
  Sender: FDA-Public Use
  Company Number: JP-GLAXOSMITHKLINE-B0860764A

PATIENT
  Age: 66 None
  Sex: Female
  Weight: 38 kg

DRUGS (14)
  1. TYKERB [Suspect]
     Indication: BREAST CANCER
     Route: 048
     Dates: start: 20110107, end: 20110121
  2. TYKERB [Suspect]
     Indication: BREAST CANCER
     Route: 048
     Dates: start: 20110121
  3. XELODA [Concomitant]
     Route: 048
     Dates: start: 20110107, end: 20110121
  4. XELODA [Concomitant]
     Route: 048
     Dates: start: 20110121, end: 20110414
  5. TAKEPRON [Concomitant]
     Indication: GASTROOESOPHAGEAL REFLUX DISEASE
     Route: 048
     Dates: end: 20110525
  6. SENNOSIDE [Concomitant]
     Indication: CONSTIPATION
     Route: 048
     Dates: end: 20110525
  7. DOMPERIDONE [Concomitant]
     Indication: NAUSEA
     Route: 048
     Dates: end: 20110525
  8. FUROSEMIDE [Concomitant]
     Indication: CARDIAC FAILURE
     Route: 048
     Dates: end: 20110525
  9. ASPARA POTASSIUM [Concomitant]
     Indication: HYPOKALAEMIA
     Route: 048
     Dates: end: 20110525
  10. BLOPRESS [Concomitant]
     Indication: CARDIAC FAILURE
     Route: 048
     Dates: end: 20110525
  11. MORPHINE SULFATE [Concomitant]
     Indication: CANCER PAIN
     Route: 048
     Dates: start: 20110107, end: 20110203
  12. DUROTEP [Concomitant]
     Indication: CANCER PAIN
     Route: 061
     Dates: start: 20110204, end: 20110602
  13. PYRIDOXAL PHOSPHATE [Concomitant]
     Indication: PROPHYLAXIS
     Route: 048
     Dates: start: 20110107, end: 20110414
  14. KERATINAMIN [Concomitant]
     Indication: PROPHYLAXIS
     Route: 061
     Dates: start: 20110107, end: 20110414

REACTIONS (3)
  - Vomiting [Recovering/Resolving]
  - Decreased appetite [Recovering/Resolving]
  - Hepatic function abnormal [Not Recovered/Not Resolved]
